FAERS Safety Report 7177392-6 (Version None)
Quarter: 2010Q4

REPORT INFORMATION
  Report Type: 
  Country: None (occurrence: None)
  Receive Date: 20101220
  Receipt Date: 20101214
  Transmission Date: 20110411
  Serious: Yes (Life-Threatening)
  Sender: FDA-Public Use
  Company Number: PHFR2010GB05887

PATIENT
  Age: 34 Year
  Sex: Male
  Weight: 90 kg

DRUGS (3)
  1. IMATINIB [Suspect]
     Indication: CHRONIC MYELOID LEUKAEMIA
     Dosage: 400 MG, QD
     Route: 048
     Dates: start: 20090729
  2. METOCLOPRAMIDE [Concomitant]
  3. ONDANSETRON [Concomitant]

REACTIONS (4)
  - ANXIETY [None]
  - DEPRESSION [None]
  - PANIC ATTACK [None]
  - SUICIDAL IDEATION [None]
